FAERS Safety Report 13734219 (Version 1)
Quarter: 2017Q3

REPORT INFORMATION
  Report Type: Spontaneous
  Country: PT (occurrence: PT)
  Receive Date: 20170708
  Receipt Date: 20170708
  Transmission Date: 20171127
  Serious: Yes (Hospitalization, Other)
  Sender: FDA-Public Use
  Company Number: PT-009507513-1705PRT001662

PATIENT
  Age: 38 Year
  Sex: Female

DRUGS (2)
  1. SINGULAIR [Suspect]
     Active Substance: MONTELUKAST SODIUM
     Indication: HYPERSENSITIVITY
     Dosage: 10 MG, 1 TABLET DAILY
     Route: 048
  2. LUKAIR [Suspect]
     Active Substance: MONTELUKAST SODIUM
     Indication: HYPERSENSITIVITY
     Dosage: 5MG, 2 TABLETS DAILY
     Route: 048
     Dates: end: 201704

REACTIONS (5)
  - Premature delivery [Unknown]
  - Pre-eclampsia [Recovered/Resolved]
  - Caesarean section [Unknown]
  - HELLP syndrome [Recovered/Resolved]
  - Maternal exposure during pregnancy [Recovered/Resolved]

NARRATIVE: CASE EVENT DATE: 20170531
